FAERS Safety Report 25010590 (Version 2)
Quarter: 2025Q2

REPORT INFORMATION
  Report Type: Spontaneous
  Country: DE (occurrence: DE)
  Receive Date: 20250225
  Receipt Date: 20250425
  Transmission Date: 20250717
  Serious: Yes (Hospitalization, Other)
  Sender: ELI LILLY AND COMPANY
  Company Number: DE-ELI_LILLY_AND_COMPANY-DE202502012874

PATIENT
  Age: 58 Year
  Sex: Female
  Weight: 118 kg

DRUGS (2)
  1. MOUNJARO [Suspect]
     Active Substance: TIRZEPATIDE
     Indication: Diabetes mellitus
     Dosage: 10 MG, WEEKLY (1/W)
     Route: 058
     Dates: start: 20240419, end: 20240925
  2. MOUNJARO [Suspect]
     Active Substance: TIRZEPATIDE
     Indication: Diabetes mellitus
     Dosage: 10 MG, WEEKLY (1/W)
     Route: 058
     Dates: start: 20240419, end: 20240925

REACTIONS (8)
  - Hyperchromic anaemia [Recovered/Resolved]
  - Weight decreased [Recovered/Resolved]
  - Vomiting [Recovered/Resolved]
  - Vitamin B12 deficiency [Recovered/Resolved]
  - Dizziness [Recovered/Resolved]
  - Malnutrition [Recovered/Resolved]
  - Decreased appetite [Recovered/Resolved]
  - Diarrhoea [Recovered/Resolved]

NARRATIVE: CASE EVENT DATE: 20241012
